FAERS Safety Report 8965068 (Version 2)
Quarter: 2012Q4

REPORT INFORMATION
  Report Type: Report from Study
  Country: DE (occurrence: DE)
  Receive Date: 20121214
  Receipt Date: 20121224
  Transmission Date: 20130627
  Serious: Yes (Other)
  Sender: FDA-Public Use
  Company Number: DE-ROCHE-1165788

PATIENT
  Age: 56 Year
  Sex: Female
  Weight: 49 kg

DRUGS (4)
  1. PEG-INTERFERON ALFA 2A [Suspect]
     Indication: HEPATITIS C
     Route: 065
     Dates: start: 20071015, end: 20080719
  2. RIBAVIRIN [Suspect]
     Indication: HEPATITIS C
     Route: 065
     Dates: start: 20071015, end: 20080719
  3. PARACETAMOL [Concomitant]
     Indication: ARTHRALGIA
     Route: 065
  4. PARACETAMOL [Concomitant]
     Indication: HEADACHE

REACTIONS (5)
  - Varices oesophageal [Unknown]
  - Hepatic failure [Unknown]
  - Hepatic cirrhosis [Unknown]
  - Splenomegaly [Unknown]
  - Hepatitis C [Unknown]
